FAERS Safety Report 25442153 (Version 6)
Quarter: 2025Q3

REPORT INFORMATION
  Report Type: Report from Study
  Country: US (occurrence: US)
  Receive Date: 20250616
  Receipt Date: 20250905
  Transmission Date: 20251020
  Serious: Yes (Hospitalization, Other)
  Sender: MALLINCKRODT
  Company Number: US-MALLINCKRODT-MNK202503573

PATIENT
  Age: 66 Year
  Sex: Female

DRUGS (1)
  1. CORTICOTROPIN [Suspect]
     Active Substance: CORTICOTROPIN
     Indication: Proteinuria
     Route: 058
     Dates: start: 202504

REACTIONS (4)
  - Cardiac failure [Unknown]
  - Pulmonary oedema [Unknown]
  - Cerebrovascular accident [Unknown]
  - Haemoglobin decreased [Unknown]

NARRATIVE: CASE EVENT DATE: 20250101
